FAERS Safety Report 13835173 (Version 1)
Quarter: 2017Q3

REPORT INFORMATION
  Report Type: Spontaneous
  Country: GB (occurrence: GB)
  Receive Date: 20170804
  Receipt Date: 20170804
  Transmission Date: 20171127
  Serious: Yes (Hospitalization, Disabling)
  Sender: FDA-Public Use
  Company Number: GB-ACCORD-048488

PATIENT
  Age: 89 Year
  Sex: Female

DRUGS (16)
  1. IVABRADINE/IVABRADINE HYDROCHLORIDE [Suspect]
     Active Substance: IVABRADINE HYDROCHLORIDE
     Indication: PRODUCT USED FOR UNKNOWN INDICATION
     Dosage: 5 MG, 2X/DAY
  2. NITRAZEPAM [Concomitant]
     Active Substance: NITRAZEPAM
     Dosage: 5 MG, 1X/DAY (AT NIGHT)
  3. RIVAROXABAN [Concomitant]
     Active Substance: RIVAROXABAN
     Dosage: 20 MG, 1X/DAY
  4. TIOTROPIUM/TIOTROPIUM BROMIDE [Concomitant]
     Dosage: 18 MICROG, 1X/DAY
  5. CALCIUM/COLECALCIFEROL [Concomitant]
  6. LANSOPRAZOLE. [Suspect]
     Active Substance: LANSOPRAZOLE
     Indication: PRODUCT USED FOR UNKNOWN INDICATION
     Dosage: 30 MG, 1X/DAY
  7. SIMVASTATIN. [Concomitant]
     Active Substance: SIMVASTATIN
     Dosage: 40 MG, 1X/DAY (AT NIGHT)
  8. QUINIDINE [Suspect]
     Active Substance: QUINIDINE
     Indication: PRODUCT USED FOR UNKNOWN INDICATION
     Dosage: 300 MG, 1X/DAY (AT NIGHT)
  9. SERETIDE [Concomitant]
     Active Substance: FLUTICASONE PROPIONATE\SALMETEROL XINAFOATE
     Dosage: 1 DF, 2X/DAY (250 ACCUHALER)
     Route: 055
  10. PLANTAGO OVATA [Concomitant]
     Active Substance: PLANTAGO OVATA LEAF
     Dosage: 3.5 G, 2X/DAY
  11. PARACETAMOL [Concomitant]
     Active Substance: ACETAMINOPHEN
     Dosage: 1 G, 4X/DAY
  12. SALBUTAMOL/SALBUTAMOL SULFATE [Concomitant]
     Dosage: 2 DF, UNK
     Route: 055
  13. MIRABEGRON [Concomitant]
     Active Substance: MIRABEGRON
     Dosage: 3.5 G, 2X/DAY
  14. OXYBUTYNIN/OXYBUTYNIN HYDROCHLORIDE [Concomitant]
     Dosage: 5 MG, 2X/DAY
  15. FUROSEMIDE. [Suspect]
     Active Substance: FUROSEMIDE
     Indication: PRODUCT USED FOR UNKNOWN INDICATION
  16. CANDESARTAN/CANDESARTAN CILEXETIL [Suspect]
     Active Substance: CANDESARTAN
     Indication: PRODUCT USED FOR UNKNOWN INDICATION
     Dosage: 6 MG, 1X/DAY

REACTIONS (7)
  - Mobility decreased [None]
  - Inflammatory marker increased [None]
  - Electrocardiogram QT prolonged [Unknown]
  - Head injury [None]
  - Blood sodium decreased [Unknown]
  - Fall [Unknown]
  - Hypokalaemia [Unknown]
